FAERS Safety Report 21879819 (Version 1)
Quarter: 2023Q1

REPORT INFORMATION
  Report Type: Spontaneous
  Country: PT (occurrence: PT)
  Receive Date: 20230118
  Receipt Date: 20230118
  Transmission Date: 20230418
  Serious: Yes (Hospitalization)
  Sender: FDA-Public Use
  Company Number: PT-BBM-PT-BBM-202209204

PATIENT
  Age: 22 Year
  Sex: Female

DRUGS (4)
  1. FENTANYL [Suspect]
     Active Substance: FENTANYL
     Indication: Electrocoagulation
     Dosage: UNK
     Route: 065
  2. ATROPINE [Suspect]
     Active Substance: ATROPINE
     Indication: Electrocoagulation
     Dosage: 20 MICROGRAM/KILOGRAM
     Route: 065
  3. LIDOCAINE [Suspect]
     Active Substance: LIDOCAINE
     Indication: Selective abortion
     Dosage: UNK
     Route: 065
  4. ROCURONIUM [Suspect]
     Active Substance: ROCURONIUM BROMIDE
     Indication: Muscle relaxant therapy
     Dosage: UNK
     Route: 065

REACTIONS (2)
  - Off label use [Unknown]
  - Exposure during pregnancy [Unknown]
